FAERS Safety Report 13960354 (Version 1)
Quarter: 2017Q3

REPORT INFORMATION
  Report Type: Spontaneous
  Country: US (occurrence: US)
  Receive Date: 20170912
  Receipt Date: 20170912
  Transmission Date: 20171128
  Serious: No
  Sender: FDA-Public Use
  Company Number: US-ALLERGAN-1710257US

PATIENT
  Age: 22 Year
  Sex: Male

DRUGS (1)
  1. LEXAPRO [Suspect]
     Active Substance: ESCITALOPRAM OXALATE
     Indication: ANXIETY
     Dosage: 10 MG, QD
     Route: 048
     Dates: start: 201702

REACTIONS (13)
  - Sinusitis [Not Recovered/Not Resolved]
  - Drug ineffective [Unknown]
  - Anger [Not Recovered/Not Resolved]
  - Hyperhidrosis [Recovering/Resolving]
  - Gait disturbance [Recovering/Resolving]
  - Anxiety [Not Recovered/Not Resolved]
  - Headache [Recovering/Resolving]
  - Personality change [Unknown]
  - Dysstasia [Recovering/Resolving]
  - Insomnia [Recovering/Resolving]
  - Abnormal behaviour [Unknown]
  - Agitation [Unknown]
  - Mania [Unknown]

NARRATIVE: CASE EVENT DATE: 20170314
